FAERS Safety Report 4968634-3 (Version None)
Quarter: 2006Q2

REPORT INFORMATION
  Report Type: 
  Country: None (occurrence: None)
  Receive Date: 20060405
  Receipt Date: 20060321
  Transmission Date: 20061013
  Serious: Yes (Hospitalization)
  Sender: FDA-Public Use
  Company Number: 2006040843

PATIENT
  Age: 71 Year
  Sex: Male
  Weight: 62 kg

DRUGS (11)
  1. DEPO-MEDROL [Suspect]
     Indication: NON-HODGKIN'S LYMPHOMA
     Dosage: (CYCLICAL), INTRATHECAL
     Route: 037
     Dates: start: 20051222, end: 20060113
  2. CYTARABINE [Suspect]
     Indication: NON-HODGKIN'S LYMPHOMA
     Dosage: (CYCLICAL), INTRATHECAL
     Route: 037
     Dates: start: 20051222, end: 20060113
  3. METHOTREXATE [Suspect]
     Indication: NON-HODGKIN'S LYMPHOMA
     Dosage: (CYCLICAL), INTRATHECAL
     Route: 037
     Dates: start: 20051222, end: 20060113
  4. VALPROIC ACID [Concomitant]
  5. ESOMEPRAZOLE MAGNESIUM (ESOMEPRAZOLE MAGNESIUM) [Concomitant]
  6. FERROUS SULFATE TAB [Concomitant]
  7. FLUCONAZOLE [Concomitant]
  8. ATORVASTATIN CALCIUM [Concomitant]
  9. ALLOPURINOL [Concomitant]
  10. CYCLOPHOSPHAMIDE [Concomitant]
  11. ETOPOSIDE [Concomitant]

REACTIONS (3)
  - BLOOD FIBRINOGEN INCREASED [None]
  - MENINGITIS ASEPTIC [None]
  - PLATELET COUNT DECREASED [None]
